FAERS Safety Report 5408885-7 (Version None)
Quarter: 2007Q3

REPORT INFORMATION
  Report Type: 
  Country: None (occurrence: None)
  Receive Date: 20070808
  Receipt Date: 20070806
  Transmission Date: 20080115
  Serious: Yes (Death, Hospitalization)
  Sender: FDA-Public Use
  Company Number: NL-ROXANE LABORATORIES, INC-2007-DE-04643GD

PATIENT
  Age: 72 Year
  Sex: Female

DRUGS (2)
  1. CALCIUM CARBONATE [Suspect]
  2. ETIDRONINE ACID [Suspect]

REACTIONS (5)
  - MULTI-ORGAN FAILURE [None]
  - PNEUMONIA [None]
  - SEPSIS [None]
  - TOXIC EPIDERMAL NECROLYSIS [None]
  - WOUND INFECTION STAPHYLOCOCCAL [None]
